FAERS Safety Report 7730252-1 (Version None)
Quarter: 2011Q3

REPORT INFORMATION
  Report Type: 
  Country: None (occurrence: None)
  Receive Date: 20110906
  Receipt Date: 20110902
  Transmission Date: 20111222
  Serious: Yes (Death, Hospitalization, Other)
  Sender: FDA-Public Use
  Company Number: PHHY2011BR38313

PATIENT
  Sex: Male

DRUGS (1)
  1. EXELON [Suspect]
     Indication: DEMENTIA
     Dosage: 9MG/5CM2, 1 PATCH PER DAY
     Route: 062
     Dates: start: 20100401

REACTIONS (5)
  - LOSS OF CONSCIOUSNESS [None]
  - ABNORMAL FAECES [None]
  - INGUINAL HERNIA [None]
  - VOMITING [None]
  - INFECTION [None]
